FAERS Safety Report 8190583-0 (Version None)
Quarter: 2012Q1

REPORT INFORMATION
  Report Type: 
  Country: None (occurrence: None)
  Receive Date: 20120307
  Receipt Date: 20120221
  Transmission Date: 20120608
  Serious: Yes (Hospitalization)
  Sender: FDA-Public Use
  Company Number: AT-ROCHE-1042254

PATIENT
  Sex: Male
  Weight: 74 kg

DRUGS (7)
  1. LAEVOLAC [Concomitant]
     Dates: start: 20110301, end: 20110501
  2. LEVOTHYROXINE SODIUM [Concomitant]
  3. HERCEPTIN [Suspect]
     Indication: GASTRIC CANCER
     Route: 042
     Dates: start: 20110301, end: 20120101
  4. XELODA [Concomitant]
     Indication: GASTRIC CANCER
     Dates: start: 20110301, end: 20110501
  5. CISPLATIN [Concomitant]
     Indication: GASTRIC CANCER
     Dates: start: 20110301, end: 20110501
  6. CARBOPLATIN [Concomitant]
     Indication: GASTRIC CANCER
     Dates: start: 20110301, end: 20110501
  7. PASPERTIN [Concomitant]

REACTIONS (1)
  - LIVER DISORDER [None]
